FAERS Safety Report 4592465-X (Version None)
Quarter: 2005Q1

REPORT INFORMATION
  Report Type: 
  Country: None (occurrence: None)
  Receive Date: 20050222
  Receipt Date: 20050216
  Transmission Date: 20050727
  Serious: Yes (Other)
  Sender: FDA-Public Use
  Company Number: 136579USA

PATIENT
  Age: 55 Year
  Sex: Female

DRUGS (4)
  1. COPAXONE [Suspect]
     Indication: MULTIPLE SCLEROSIS
     Dosage: 20 MILLIGRAM QD SUBCUTANEOUS
     Route: 058
     Dates: start: 19990101
  2. ZOCOR [Concomitant]
  3. ELAVIL [Concomitant]
  4. WATER PILL [Concomitant]

REACTIONS (7)
  - CONTUSION [None]
  - ESCHAR [None]
  - INJECTION SITE NECROSIS [None]
  - INJECTION SITE PAIN [None]
  - INJECTION SITE REACTION [None]
  - SCAR [None]
  - WOUND [None]
